FAERS Safety Report 8094180 (Version 6)
Quarter: 2013Q4

REPORT INFORMATION
  Report Type: Spontaneous
  Country: US (occurrence: US)
  Receive Date: 20110817
  Receipt Date: 20131202
  Transmission Date: 20140711
  Serious: Yes (Hospitalization)
  Sender: FDA-Public Use
  Company Number: US-GLAXOSMITHKLINE-A0915685A

PATIENT
  Age: 67 Year
  Sex: Male
  Weight: 187.3 kg

DRUGS (11)
  1. AVANDIA [Suspect]
     Indication: DIABETES MELLITUS
     Dosage: 8MG PER DAY
     Route: 048
     Dates: start: 200111, end: 200710
  2. ALBUTEROL [Concomitant]
  3. ATROVENT [Concomitant]
  4. GLUCOTROL [Concomitant]
  5. IMITREX [Concomitant]
  6. LOTENSIN [Concomitant]
  7. NEXIUM [Concomitant]
  8. PRAVACHOL [Concomitant]
  9. METFORMIN [Concomitant]
  10. INSULIN [Concomitant]
  11. PREDNISONE [Concomitant]

REACTIONS (5)
  - Ventricular arrhythmia [Not Recovered/Not Resolved]
  - Cardiac failure congestive [Unknown]
  - Arrhythmia [Unknown]
  - Hypertension [Unknown]
  - Hyperlipidaemia [Unknown]
